FAERS Safety Report 10213623 (Version 1)
Quarter: 2014Q2

REPORT INFORMATION
  Report Type: Spontaneous
  Country: US (occurrence: US)
  Receive Date: 20140603
  Receipt Date: 20140603
  Transmission Date: 20141212
  Serious: No
  Sender: FDA-Public Use
  Company Number: US-ASTRAZENECA-2014SE35782

PATIENT
  Age: 12 Year
  Sex: Male
  Weight: 40.4 kg

DRUGS (15)
  1. SYMBICORT [Suspect]
     Indication: ASTHMA
     Dosage: 160 4.5, 2 PUFFS BID
     Route: 055
     Dates: end: 201312
  2. SYMBICORT [Suspect]
     Indication: ASTHMA
     Dosage: 80 4.5, 2 PUFFS BID
     Route: 055
     Dates: start: 201312
  3. SYMBICORT [Suspect]
     Indication: ASTHMA
     Dosage: 80 4.5, UNKNOWN
     Route: 055
     Dates: start: 20140403
  4. BUDESONIDE [Suspect]
     Indication: ASTHMA
     Route: 055
  5. PANTOPRAZOLE [Concomitant]
     Indication: GASTROOESOPHAGEAL REFLUX DISEASE
     Route: 048
  6. FERROUS SULFATE [Concomitant]
     Indication: ANAEMIA
     Route: 048
  7. AMITIZA [Concomitant]
     Indication: FUNCTIONAL GASTROINTESTINAL DISORDER
     Dosage: 8 MCG BID
     Route: 048
  8. MONTELUKAST SODIUM [Concomitant]
     Indication: ASTHMA
     Route: 048
  9. ALLEGRA [Concomitant]
     Indication: ASTHMA
     Route: 048
  10. ALLEGRA [Concomitant]
     Indication: MULTIPLE ALLERGIES
     Route: 048
  11. FISH OIL [Concomitant]
     Indication: FUNCTIONAL GASTROINTESTINAL DISORDER
     Route: 048
  12. PROBIOTICS [Concomitant]
     Indication: FUNCTIONAL GASTROINTESTINAL DISORDER
     Route: 048
  13. SENOKOT [Concomitant]
     Indication: LAXATIVE SUPPORTIVE CARE
     Dosage: 8.6 MG SENNA AND 50 MG
     Route: 048
  14. VENTOLIN [Concomitant]
     Indication: ASTHMA
     Dosage: 2 PUFFS, 90 MCG PRN
     Route: 055
  15. DUONEB [Concomitant]
     Indication: ASTHMA
     Dosage: IPRATROPIUM BROMIDE 0.5 MG ALBUTEROL SULFATE 3 MG, PRN
     Route: 055

REACTIONS (7)
  - Asthma [Not Recovered/Not Resolved]
  - Seasonal allergy [Not Recovered/Not Resolved]
  - Functional gastrointestinal disorder [Not Recovered/Not Resolved]
  - House dust allergy [Unknown]
  - Cough [Not Recovered/Not Resolved]
  - Circumstance or information capable of leading to medication error [Unknown]
  - Off label use [Not Recovered/Not Resolved]
